FAERS Safety Report 20834033 (Version 1)
Quarter: 2022Q2

REPORT INFORMATION
  Report Type: Spontaneous
  Country: US (occurrence: None)
  Receive Date: 20220513
  Receipt Date: 20220513
  Transmission Date: 20220721
  Serious: No
  Sender: FDA-Public Use
  Company Number: None

PATIENT
  Age: 80 Year
  Sex: Female
  Weight: 75.75 kg

DRUGS (1)
  1. ORENCIA [Suspect]
     Active Substance: ABATACEPT
     Indication: Rheumatoid arthritis
     Dosage: FREQUENCY : AS DIRECTED;?INFUSE 750MG VIA INTRAVENOUSLY AT WEEK 0, 2 AND 4 AS?DIRECTED.?
     Route: 042
     Dates: start: 202203

REACTIONS (1)
  - Pneumonia [None]
